FAERS Safety Report 8827013 (Version 1)
Quarter: 2012Q4

REPORT INFORMATION
  Report Type: 
  Country: GB (occurrence: GB)
  Receive Date: 20121005
  Receipt Date: 20121005
  Transmission Date: 20130627
  Serious: Yes (Other)
  Sender: FDA-Public Use
  Company Number: GB-ABBOTT-12P-167-0989286-00

PATIENT
  Sex: Female

DRUGS (1)
  1. CREON [Suspect]
     Indication: PRODUCT USED FOR UNKNOWN INDICATION
     Dosage: Twenty one 25,000 capsules with each meal
     Route: 048

REACTIONS (2)
  - VIIth nerve paralysis [Unknown]
  - Viral infection [Unknown]
